FAERS Safety Report 20642966 (Version 1)
Quarter: 2022Q1

REPORT INFORMATION
  Report Type: Report from Study
  Country: GB (occurrence: GB)
  Receive Date: 20220328
  Receipt Date: 20220328
  Transmission Date: 20220423
  Serious: Yes (Other)
  Sender: FDA-Public Use
  Company Number: GB-SAMSUNG BIOEPIS-SB-2022-07283

PATIENT
  Sex: Female

DRUGS (1)
  1. IMRALDI [Suspect]
     Active Substance: ADALIMUMAB
     Indication: Axial spondyloarthritis
     Route: 058
     Dates: start: 20200911

REACTIONS (6)
  - Abscess [Not Recovered/Not Resolved]
  - Pruritus [Unknown]
  - Skin fissures [Not Recovered/Not Resolved]
  - Psoriasis [Unknown]
  - Depression [Unknown]
  - Psychiatric symptom [Unknown]
